FAERS Safety Report 26202908 (Version 1)
Quarter: 2025Q4

REPORT INFORMATION
  Report Type: Report from Study
  Country: EU (occurrence: EU)
  Receive Date: 20251226
  Receipt Date: 20251226
  Transmission Date: 20260118
  Serious: Yes (Hospitalization, Other)
  Sender: REGENERON
  Company Number: EU-BAYER-2025A085412

PATIENT
  Sex: Female

DRUGS (6)
  1. EYLEA HD [Suspect]
     Active Substance: AFLIBERCEPT
     Indication: Neovascular age-related macular degeneration
     Dosage: 70 UL, RIGHT EYE, SOLUTION FOR INJECTION, 114.3 MG/ML
     Dates: start: 20240617
  2. EYLEA HD [Suspect]
     Active Substance: AFLIBERCEPT
     Dosage: 70 UL, RIGHT EYE, SOLUTION FOR INJECTION, 114.3 MG/ML
     Dates: start: 20250618
  3. EYLEA HD [Suspect]
     Active Substance: AFLIBERCEPT
     Dosage: 70 UL, RIGHT EYE, SOLUTION FOR INJECTION, 114.3 MG/ML
     Dates: start: 20240815
  4. EYLEA HD [Suspect]
     Active Substance: AFLIBERCEPT
     Dosage: 70 UL, RIGHT EYE, SOLUTION FOR INJECTION, 114.3 MG/ML
     Dates: start: 20241024
  5. ELIQUIS [Concomitant]
     Active Substance: APIXABAN
     Indication: Product used for unknown indication
     Dosage: UNK
  6. LEVODOPA [Concomitant]
     Active Substance: LEVODOPA
     Indication: Product used for unknown indication
     Dosage: UNK

REACTIONS (1)
  - Hospitalisation [Recovered/Resolved]

NARRATIVE: CASE EVENT DATE: 20241121
